FAERS Safety Report 20532886 (Version 2)
Quarter: 2022Q1

REPORT INFORMATION
  Report Type: Spontaneous
  Country: CN (occurrence: CN)
  Receive Date: 20220301
  Receipt Date: 20220308
  Transmission Date: 20220424
  Serious: Yes (Hospitalization, Other)
  Sender: FDA-Public Use
  Company Number: CN-GLAXOSMITHKLINE-CN2022APC036183

PATIENT
  Sex: Male

DRUGS (1)
  1. SERETIDE [Suspect]
     Active Substance: FLUTICASONE PROPIONATE\SALMETEROL XINAFOATE
     Indication: Asthma
     Dosage: 1 PUFF(S), QD (1 INHALATION QD)

REACTIONS (7)
  - Respiratory failure [Unknown]
  - Dyspnoea [Unknown]
  - Overdose [Unknown]
  - Asthma [Unknown]
  - Product use issue [Unknown]
  - Underdose [Unknown]
  - Wrong technique in device usage process [Unknown]
